FAERS Safety Report 6379096-6 (Version None)
Quarter: 2009Q3

REPORT INFORMATION
  Report Type: 
  Country: None (occurrence: None)
  Receive Date: 20090923
  Receipt Date: 20090916
  Transmission Date: 20100115
  Serious: Yes (Other)
  Sender: FDA-Public Use
  Company Number: CHPA2009US18859

PATIENT
  Age: 60 Year
  Sex: Male
  Weight: 65.8 kg

DRUGS (1)
  1. NODOZ (NCH) (CAFFEINE) CAPLET [Suspect]
     Indication: SOMNOLENCE
     Dosage: 200 MG, QD, ORAL
     Route: 048
     Dates: start: 20090901

REACTIONS (3)
  - DRUG DEPENDENCE [None]
  - FATIGUE [None]
  - SOMNOLENCE [None]
